FAERS Safety Report 16000094 (Version 2)
Quarter: 2019Q1

REPORT INFORMATION
  Report Type: Spontaneous
  Country: DE (occurrence: DE)
  Receive Date: 20190225
  Receipt Date: 20190315
  Transmission Date: 20190418
  Serious: Yes (Death, Life-Threatening, Other)
  Sender: FDA-Public Use
  Company Number: DE-BAYER-2019-034560

PATIENT
  Age: 78 Year
  Sex: Female
  Weight: 80 kg

DRUGS (5)
  1. CIPROBAY [Suspect]
     Active Substance: CIPROFLOXACIN
     Indication: SEPSIS
     Dosage: UNK
     Route: 042
     Dates: start: 20190115, end: 20190128
  2. DAPTOMYCIN. [Suspect]
     Active Substance: DAPTOMYCIN
     Indication: SEPSIS
     Dosage: UNK
     Route: 042
     Dates: start: 20190115, end: 20190128
  3. COLISTIN [Suspect]
     Active Substance: COLISTIN
     Indication: SEPSIS
     Dosage: UNK
     Route: 055
     Dates: start: 20190115, end: 20190128
  4. COLISTIN [Suspect]
     Active Substance: COLISTIN
     Indication: SEPSIS
     Dosage: 12 MIU
     Route: 042
     Dates: start: 20190115, end: 20190128
  5. TOBRAMYCIN. [Suspect]
     Active Substance: TOBRAMYCIN
     Indication: SEPSIS
     Dosage: UNK
     Route: 042
     Dates: start: 20190115, end: 20190128

REACTIONS (3)
  - Multiple organ dysfunction syndrome [Fatal]
  - Dialysis [Fatal]
  - Death [Fatal]

NARRATIVE: CASE EVENT DATE: 20190130
